FAERS Safety Report 12353954 (Version 1)
Quarter: 2016Q2

REPORT INFORMATION
  Report Type: Other
  Country: PT (occurrence: PT)
  Receive Date: 20160511
  Receipt Date: 20160511
  Transmission Date: 20160815
  Serious: Yes (Congenital Anomaly)
  Sender: FDA-Public Use
  Company Number: PT-ORCHID HEALTHCARE-1051837

PATIENT
  Age: 1 Day
  Sex: Male
  Weight: 3.59 kg

DRUGS (2)
  1. ALPRAZOLAM. [Concomitant]
     Active Substance: ALPRAZOLAM
     Route: 065
  2. VENLAFAXINE HYDROCHLORIDE. [Suspect]
     Active Substance: VENLAFAXINE HYDROCHLORIDE
     Indication: DEPRESSION
     Route: 065

REACTIONS (9)
  - Neonatal respiratory distress syndrome [Recovered/Resolved]
  - Hepatomegaly [Recovered/Resolved]
  - Tachypnoea [Recovered/Resolved]
  - Feeding disorder [Recovered/Resolved]
  - Tachycardia [Recovered/Resolved]
  - Exposure during pregnancy [Recovered/Resolved]
  - Poor sucking reflex [Recovered/Resolved]
  - Ventricular dysfunction [Recovered/Resolved]
  - Use of accessory respiratory muscles [Recovered/Resolved]
